FAERS Safety Report 5811979-5 (Version None)
Quarter: 2008Q3

REPORT INFORMATION
  Report Type: 
  Country: None (occurrence: None)
  Receive Date: 20080716
  Receipt Date: 20080708
  Transmission Date: 20090109
  Serious: Yes (Disabling, Other)
  Sender: FDA-Public Use
  Company Number: FR-AMGEN-UK276392

PATIENT
  Age: 79 Year
  Sex: Male

DRUGS (7)
  1. ARANESP [Suspect]
     Indication: ANAEMIA OF MALIGNANT DISEASE
     Route: 058
     Dates: start: 20080423
  2. NICARDIPINE HCL [Concomitant]
     Route: 065
  3. IXPRIM [Concomitant]
     Route: 065
  4. VALSARTAN AND HYDROCHLOROTHIAZIDE [Concomitant]
     Route: 065
  5. KERLONE [Concomitant]
     Route: 065
  6. KARDEGIC [Concomitant]
     Route: 065
  7. XATRAL [Concomitant]
     Route: 065

REACTIONS (3)
  - GAIT DISTURBANCE [None]
  - LOWER LIMB FRACTURE [None]
  - MYALGIA [None]
